FAERS Safety Report 7631596-4 (Version None)
Quarter: 2011Q3

REPORT INFORMATION
  Report Type: 
  Country: None (occurrence: None)
  Receive Date: 20110725
  Receipt Date: 20110317
  Transmission Date: 20111222
  Serious: No
  Sender: FDA-Public Use
  Company Number: US-BRISTOL-MYERS SQUIBB COMPANY-15485071

PATIENT
  Age: 79 Year
  Sex: Female
  Weight: 68 kg

DRUGS (6)
  1. ASPIRIN [Suspect]
     Indication: CORONARY ARTERY DISEASE
  2. SYNTHROID [Concomitant]
  3. BENAZEPRIL HYDROCHLORIDE [Concomitant]
  4. ISOSORBIDE DINITRATE [Concomitant]
     Indication: CARDIAC DISORDER
  5. SIMVASTATIN [Concomitant]
  6. WARFARIN SODIUM [Suspect]
     Indication: ATRIAL FIBRILLATION
     Dosage: INITAL DOSE: 5 AND 4 MG.
     Route: 048
     Dates: start: 20090601

REACTIONS (1)
  - EPISTAXIS [None]
